FAERS Safety Report 6001333-8 (Version None)
Quarter: 2008Q4

REPORT INFORMATION
  Report Type: 
  Country: None (occurrence: None)
  Receive Date: 20081215
  Receipt Date: 20071105
  Transmission Date: 20090506
  Serious: No
  Sender: FDA-Public Use
  Company Number: US-AMGEN-KDL251215

PATIENT
  Sex: Male

DRUGS (3)
  1. ENBREL [Suspect]
     Indication: RHEUMATOID ARTHRITIS
     Route: 058
     Dates: start: 20070710
  2. PLAQUENIL [Concomitant]
     Route: 048
     Dates: start: 19980101
  3. SULFASALAZINE [Concomitant]
     Route: 048
     Dates: start: 19980101

REACTIONS (4)
  - MALAISE [None]
  - NASOPHARYNGITIS [None]
  - OROPHARYNGEAL PAIN [None]
  - SINUS CONGESTION [None]
